FAERS Safety Report 7550205-6 (Version None)
Quarter: 2011Q2

REPORT INFORMATION
  Report Type: 
  Country: None (occurrence: None)
  Receive Date: 20110615
  Receipt Date: 20110601
  Transmission Date: 20111010
  Serious: Yes (Other)
  Sender: FDA-Public Use
  Company Number: US-UCBSA-026552

PATIENT
  Age: 52 Year
  Sex: Female
  Weight: 74 kg

DRUGS (9)
  1. METHOTREXATE [Suspect]
     Route: 048
     Dates: start: 20101201
  2. ALBUTEROL SULFATE AUTOHALER [Concomitant]
     Indication: ASTHMA
     Dosage: INHALER
     Dates: start: 20000101
  3. ADVAIR DISKUS 100/50 [Concomitant]
     Indication: ASTHMA
     Dosage: 500MCG-50MCG DAILY INHALATION
     Dates: start: 20080101
  4. VIMPAT [Suspect]
     Indication: EPILEPSY
     Route: 048
     Dates: start: 20100110
  5. SINGULAIR [Concomitant]
     Indication: ASTHMA
     Dosage: 10 MG WEEKLY
     Route: 048
     Dates: start: 20080101
  6. SYNTHROID [Concomitant]
     Indication: HYPOTHYROIDISM
     Dosage: 0.088 MG DAILY
     Route: 048
     Dates: start: 20030818
  7. LAMICTAL XR [Suspect]
     Indication: EPILEPSY
     Dates: start: 20090601
  8. PAXIL [Concomitant]
     Indication: DEPRESSION
     Route: 048
     Dates: start: 20090101
  9. TOPIRAMATE [Concomitant]
     Indication: EPILEPSY
     Route: 048
     Dates: start: 20010101

REACTIONS (1)
  - STEVENS-JOHNSON SYNDROME [None]
